FAERS Safety Report 4980553-5 (Version None)
Quarter: 2006Q2

REPORT INFORMATION
  Report Type: 
  Country: None (occurrence: None)
  Receive Date: 20060424
  Receipt Date: 20050105
  Transmission Date: 20061013
  Serious: Yes (Hospitalization, Other)
  Sender: FDA-Public Use
  Company Number: US-MERCK-0501USA00593

PATIENT
  Age: 56 Year
  Sex: Male

DRUGS (4)
  1. VIOXX [Suspect]
     Route: 048
  2. UNITHROID [Concomitant]
     Route: 065
  3. PREVACID [Concomitant]
     Route: 065
  4. HYDROCODONE HYDROCHLORIDE [Concomitant]
     Route: 065

REACTIONS (17)
  - ACUTE CORONARY SYNDROME [None]
  - ANGINA UNSTABLE [None]
  - BLOOD GLUCOSE INCREASED [None]
  - BLOOD POTASSIUM DECREASED [None]
  - CONDITION AGGRAVATED [None]
  - CORONARY ARTERY DISEASE [None]
  - CORONARY ARTERY STENOSIS [None]
  - DYSGEUSIA [None]
  - GASTROOESOPHAGEAL REFLUX DISEASE [None]
  - INTRACARDIAC THROMBUS [None]
  - LUNG DISORDER [None]
  - MYOCARDIAL INFARCTION [None]
  - NEPHROLITHIASIS [None]
  - OEDEMA PERIPHERAL [None]
  - OSTEOARTHRITIS [None]
  - POLYNEUROPATHY [None]
  - SINUS BRADYCARDIA [None]
